FAERS Safety Report 6610521-9 (Version None)
Quarter: 2010Q1

REPORT INFORMATION
  Report Type: 
  Country: None (occurrence: None)
  Receive Date: 20100302
  Receipt Date: 20100217
  Transmission Date: 20100710
  Serious: Yes (Hospitalization, Other)
  Sender: FDA-Public Use
  Company Number: GB-NOVOPROD-289365

PATIENT
  Sex: Female
  Weight: 88.4 kg

DRUGS (6)
  1. LIRAGLUTIDE [Suspect]
     Indication: TYPE 2 DIABETES MELLITUS
     Dosage: 0.6 MG, QD
     Route: 058
     Dates: start: 20090630, end: 20090706
  2. LIRAGLUTIDE [Suspect]
     Dosage: 1.2 MG, QD
     Route: 058
     Dates: start: 20090707, end: 20090710
  3. LIRAGLUTIDE [Suspect]
     Dosage: 0.6 MG, QD
     Route: 058
     Dates: start: 20090716
  4. JANUVIA [Suspect]
     Indication: TYPE 2 DIABETES MELLITUS
     Dosage: 100 MG, QD
     Dates: start: 20080702, end: 20090629
  5. ACETAMINOPHEN AND CODEINE PHOSPHATE [Concomitant]
     Indication: NECK PAIN
     Dosage: 2 TAB, UNK
     Route: 048
     Dates: start: 20090401, end: 20090727
  6. METFORMIN HYDROCHLORIDE [Concomitant]
     Dosage: 1500 MG, QD
     Route: 048

REACTIONS (1)
  - DEHYDRATION [None]
